FAERS Safety Report 7290716-4 (Version None)
Quarter: 2011Q1

REPORT INFORMATION
  Report Type: 
  Country: None (occurrence: None)
  Receive Date: 20110214
  Receipt Date: 20110208
  Transmission Date: 20110831
  Serious: Yes (Death)
  Sender: FDA-Public Use
  Company Number: US-ROCHE-742666

PATIENT
  Sex: Female

DRUGS (3)
  1. AVASTIN [Suspect]
     Indication: NON-SMALL CELL LUNG CANCER
     Dosage: PERMANANTLY DISCONTIUED.
     Route: 042
     Dates: start: 20081126, end: 20100911
  2. CARBOPLATIN [Concomitant]
     Dosage: DOSE: 5 AUC, FREQUENCY Q 3 WEEKS DAY 1 ONLY. CYCLE 6
     Dates: start: 20081126, end: 20090410
  3. TAXOL [Concomitant]
     Dosage: FREQUENCY: DAY 1 AND DAY 8 IN 3 WEEK CYCLE. CYCLE 6
     Dates: start: 20081126, end: 20090410

REACTIONS (1)
  - BRONCHOPULMONARY ASPERGILLOSIS [None]
